FAERS Safety Report 5708946-9 (Version None)
Quarter: 2008Q2

REPORT INFORMATION
  Report Type: 
  Country: None (occurrence: None)
  Receive Date: 20080414
  Receipt Date: 20080414
  Transmission Date: 20081010
  Serious: No
  Sender: FDA-Public Use
  Company Number: None

PATIENT
  Age: 42 Year
  Sex: Male
  Weight: 65.7716 kg

DRUGS (4)
  1. SINGULAIR [Suspect]
     Indication: ASTHMA
     Dosage: 1 ONCE A DAY PO
     Route: 048
     Dates: start: 19980101, end: 20000317
  2. SINGULAIR [Suspect]
     Indication: MULTIPLE ALLERGIES
     Dosage: 1 ONCE A DAY PO
     Route: 048
     Dates: start: 19980101, end: 20000317
  3. SINGULAIR [Suspect]
     Indication: ASTHMA
     Dosage: 1 ONCE A DAY PO
     Route: 048
     Dates: start: 20060605, end: 20070315
  4. SINGULAIR [Suspect]
     Indication: MULTIPLE ALLERGIES
     Dosage: 1 ONCE A DAY PO
     Route: 048
     Dates: start: 20060605, end: 20070315

REACTIONS (2)
  - AGITATION [None]
  - ANXIETY [None]
